FAERS Safety Report 4549631-9 (Version None)
Quarter: 2005Q1

REPORT INFORMATION
  Report Type: 
  Country: None (occurrence: None)
  Receive Date: 20050111
  Receipt Date: 20041005
  Transmission Date: 20050727
  Serious: Yes (Hospitalization)
  Sender: FDA-Public Use
  Company Number: US-GLAXOSMITHKLINE-A0528854A

PATIENT
  Age: 64 Year
  Sex: Female

DRUGS (2)
  1. FLOLAN [Suspect]
     Indication: PULMONARY HYPERTENSION
     Route: 042
     Dates: start: 20031001
  2. TRACLEER [Suspect]
     Indication: PULMONARY HYPERTENSION
     Dosage: 125MG TWICE PER DAY
     Route: 048
     Dates: start: 20030501, end: 20040501

REACTIONS (14)
  - BLOOD ALKALINE PHOSPHATASE INCREASED [None]
  - CATHETER RELATED COMPLICATION [None]
  - CENTRAL LINE INFECTION [None]
  - CHEST DISCOMFORT [None]
  - DYSPNOEA [None]
  - DYSPNOEA EXERTIONAL [None]
  - GALLOP RHYTHM PRESENT [None]
  - HEPATIC CONGESTION [None]
  - JUGULAR VEIN DISTENSION [None]
  - LEFT VENTRICULAR FAILURE [None]
  - LIVER FUNCTION TEST ABNORMAL [None]
  - OEDEMA PERIPHERAL [None]
  - ORTHOPNOEA [None]
  - PULMONARY OEDEMA [None]
